FAERS Safety Report 8811372 (Version 1)
Quarter: 2012Q4

REPORT INFORMATION
  Report Type: 
  Country: US (occurrence: US)
  Receive Date: 20120927
  Receipt Date: 20120927
  Transmission Date: 20130627
  Serious: No
  Sender: FDA-Public Use
  Company Number: US-BAYER-2012-100447

PATIENT

DRUGS (2)
  1. ALEVE CAPLET/TABLET,MIDOL EXTENDED RELIEF CAPLET [Suspect]
     Indication: ANALGESIC THERAPY
     Route: 048
  2. MEDS THAT ALSO HAD ANTI-INFLAMMATORY AGE [Concomitant]

REACTIONS (2)
  - Tinea pedis [None]
  - Urticaria [None]
